FAERS Safety Report 12917571 (Version 12)
Quarter: 2018Q1

REPORT INFORMATION
  Report Type: Spontaneous
  Country: US (occurrence: US)
  Receive Date: 20161107
  Receipt Date: 20180119
  Transmission Date: 20180508
  Serious: Yes (Death, Congenital Anomaly, Other)
  Sender: FDA-Public Use
  Company Number: PHEH2016US028641

PATIENT
  Sex: Male

DRUGS (2)
  1. ZOFRAN [Suspect]
     Active Substance: ONDANSETRON HYDROCHLORIDE
     Indication: FOETAL EXPOSURE DURING PREGNANCY
     Dosage: MOTHER^S DOSE: 2 MG/ML BID
     Route: 064
  2. ZOFRAN [Suspect]
     Active Substance: ONDANSETRON HYDROCHLORIDE
     Indication: FOETAL EXPOSURE DURING PREGNANCY
     Dosage: MOTHER^S DOSE: 8 MG, TID
     Route: 064

REACTIONS (101)
  - Cardiac murmur [Unknown]
  - Erythema [Unknown]
  - Periorbital oedema [Unknown]
  - Face oedema [Unknown]
  - Hypotension [Recovered/Resolved]
  - Dyspnoea [Unknown]
  - Heart disease congenital [Unknown]
  - Ventricular hypoplasia [Unknown]
  - Right atrial dilatation [Unknown]
  - Klebsiella infection [Recovered/Resolved]
  - Focal dyscognitive seizures [Unknown]
  - Meningitis [Unknown]
  - Sepsis [Unknown]
  - Transient tachypnoea of the newborn [Unknown]
  - Hypokalaemia [Recovered/Resolved]
  - Diarrhoea [Unknown]
  - Cardiomegaly [Unknown]
  - Dry skin [Unknown]
  - Lung disorder [Unknown]
  - Aortic valve atresia [Unknown]
  - Congenital tricuspid valve atresia [Unknown]
  - Congenital aortic valve incompetence [Unknown]
  - Left-to-right cardiac shunt [Unknown]
  - Status epilepticus [Recovered/Resolved]
  - Respiratory acidosis [Recovered/Resolved]
  - Renal failure [Unknown]
  - Pyrexia [Unknown]
  - Pain [Unknown]
  - Supraventricular extrasystoles [Unknown]
  - Upper respiratory tract infection [Unknown]
  - Rash [Unknown]
  - Patent ductus arteriosus [Unknown]
  - Aorta hypoplasia [Unknown]
  - Meconium aspiration syndrome [Recovered/Resolved]
  - Right ventricular dysfunction [Unknown]
  - Pneumonia [Unknown]
  - Ascites [Unknown]
  - Gallbladder enlargement [Unknown]
  - Cerebral ventricle dilatation [Unknown]
  - Subclavian vein thrombosis [Unknown]
  - Hypoxia [Unknown]
  - Anaemia [Recovered/Resolved]
  - Swelling [Unknown]
  - Skin exfoliation [Unknown]
  - Viral infection [Unknown]
  - Mitral valve atresia [Unknown]
  - Anomalous pulmonary venous connection [Unknown]
  - Necrotising colitis [Recovered/Resolved]
  - Atelectasis [Unknown]
  - Klebsiella sepsis [Recovered/Resolved]
  - Aortic valve incompetence [Unknown]
  - Urinary tract infection [Unknown]
  - Hypoglycaemia [Unknown]
  - Failure to thrive [Unknown]
  - Bradycardia [Unknown]
  - Selective eating disorder [Unknown]
  - Oropharyngeal plaque [Unknown]
  - Dermatitis diaper [Unknown]
  - Hypoplastic left heart syndrome [Unknown]
  - Laevocardia [Unknown]
  - Hydrocephalus [Unknown]
  - Respiratory syncytial virus infection [Unknown]
  - Acute kidney injury [Unknown]
  - Head injury [Unknown]
  - Pneumothorax [Unknown]
  - Developmental delay [Unknown]
  - Hypothermia [Unknown]
  - Hypernatraemia [Recovered/Resolved]
  - Joint range of motion decreased [Unknown]
  - Splenomegaly [Unknown]
  - Cardiac failure [Fatal]
  - Foetal exposure during pregnancy [Unknown]
  - Neonatal respiratory failure [Unknown]
  - Drug dependence [Unknown]
  - Intraventricular haemorrhage [Unknown]
  - Thrombocytopenia [Unknown]
  - Metabolic acidosis [Recovered/Resolved]
  - Injury [Unknown]
  - Haematuria [Unknown]
  - Cough [Unknown]
  - Jaundice [Unknown]
  - Cardio-respiratory arrest [Fatal]
  - Hypoplastic right heart syndrome [Unknown]
  - Atrial septal defect [Unknown]
  - Right-to-left cardiac shunt [Unknown]
  - Pulmonary artery dilatation [Unknown]
  - Respiratory distress [Unknown]
  - Pulmonary haemorrhage [Unknown]
  - Pleural effusion [Recovering/Resolving]
  - Tricuspid valve incompetence [Unknown]
  - Seizure [Recovered/Resolved]
  - Lethargy [Unknown]
  - Drooling [Unknown]
  - Sluggishness [Unknown]
  - Right ventricular hypertrophy [Unknown]
  - Haemothorax [Recovered/Resolved]
  - Hepatic failure [Unknown]
  - Hypoxic-ischaemic encephalopathy [Unknown]
  - Pulmonary oedema [Unknown]
  - Cellulitis [Unknown]
  - Emotional distress [Unknown]

NARRATIVE: CASE EVENT DATE: 20131217
